FAERS Safety Report 24933761 (Version 1)
Quarter: 2025Q1

REPORT INFORMATION
  Report Type: Report from Study
  Country: US (occurrence: US)
  Receive Date: 20250206
  Receipt Date: 20250206
  Transmission Date: 20250409
  Serious: Yes (Hospitalization, Other)
  Sender: EXELIXIS
  Company Number: US-EXELIXIS-CABO-24074053

PATIENT
  Age: 65 Year
  Sex: Male
  Weight: 83.9 kg

DRUGS (38)
  1. CABOMETYX [Suspect]
     Active Substance: CABOZANTINIB S-MALATE
     Indication: Metastatic renal cell carcinoma
     Dosage: 40 MG, QD
     Route: 048
     Dates: start: 20220517, end: 20240210
  2. OPDIVO [Suspect]
     Active Substance: NIVOLUMAB
     Indication: Metastatic renal cell carcinoma
     Dates: start: 20220517, end: 20240210
  3. EVEROLIMUS [Suspect]
     Active Substance: EVEROLIMUS
     Indication: Metastatic renal cell carcinoma
     Dosage: 5 MG, QD
     Route: 048
  4. LENVIMA [Suspect]
     Active Substance: LENVATINIB
     Indication: Metastatic renal cell carcinoma
     Dosage: 14 MG, QD
     Route: 048
  5. LENVIMA [Suspect]
     Active Substance: LENVATINIB
     Dates: start: 20240208
  6. PROVENTIL [Concomitant]
     Active Substance: ALBUTEROL
     Indication: Wheezing
  7. PROVENTIL [Concomitant]
     Active Substance: ALBUTEROL
     Indication: Dyspnoea
  8. VENTOLIN [Concomitant]
     Active Substance: ALBUTEROL SULFATE
     Indication: Wheezing
  9. VENTOLIN [Concomitant]
     Active Substance: ALBUTEROL SULFATE
     Indication: Dyspnoea
  10. PROAIR HFA [Concomitant]
     Active Substance: ALBUTEROL SULFATE
     Indication: Wheezing
  11. PROAIR HFA [Concomitant]
     Active Substance: ALBUTEROL SULFATE
     Indication: Dyspnoea
  12. CALCIUM;MAGNESIUM;ZINC [Concomitant]
  13. VITAMIN D3 [Concomitant]
     Active Substance: CHOLECALCIFEROL
  14. CLINDAGEL [Concomitant]
     Active Substance: CLINDAMYCIN PHOSPHATE
     Indication: Dermatitis acneiform
  15. VITAMIN B12 [Concomitant]
     Active Substance: CYANOCOBALAMIN
  16. DEXAMETHASONE [Concomitant]
     Active Substance: DEXAMETHASONE
  17. LOMOTIL [Concomitant]
     Active Substance: ATROPINE SULFATE\DIPHENOXYLATE HYDROCHLORIDE
     Indication: Diarrhoea
  18. NEXIUM [Concomitant]
     Active Substance: ESOMEPRAZOLE MAGNESIUM
  19. LEVOTHYROXINE SODIUM [Concomitant]
     Active Substance: LEVOTHYROXINE SODIUM
  20. COZAAR [Concomitant]
     Active Substance: LOSARTAN POTASSIUM
  21. MELATONIN [Concomitant]
     Active Substance: MELATONIN
  22. NIACIN [Concomitant]
     Active Substance: NIACIN
  23. ZOFRAN [Concomitant]
     Active Substance: ONDANSETRON HYDROCHLORIDE
     Indication: Nausea
  24. POMEGRANATE [Concomitant]
     Active Substance: POMEGRANATE
  25. PROBIOTICS NOS [Concomitant]
     Active Substance: PROBIOTICS NOS
  26. CRESTOR [Concomitant]
     Active Substance: ROSUVASTATIN CALCIUM
  27. KENALOG [Concomitant]
     Active Substance: TRIAMCINOLONE ACETONIDE
  28. VITAMIN A [Concomitant]
     Active Substance: VITAMIN A
  29. BENEFIBER [Concomitant]
     Active Substance: STARCH, WHEAT
  30. PROTONIX [Concomitant]
     Active Substance: PANTOPRAZOLE SODIUM
  31. ENOXAPARIN [Concomitant]
     Active Substance: ENOXAPARIN
  32. ACETAMINOPHEN [Concomitant]
     Active Substance: ACETAMINOPHEN
  33. POLYETHYLENE GLYCOL [Concomitant]
     Active Substance: POLYETHYLENE GLYCOL
  34. ONDANSETRON HYDROCHLORIDE [Concomitant]
     Active Substance: ONDANSETRON HYDROCHLORIDE
  35. VITAMIN E [Concomitant]
     Active Substance: .ALPHA.-TOCOPHEROL
  36. DIPHENOXYLATE HYDROCHLORIDE AND ATROPINE SULFATE [Concomitant]
     Active Substance: ATROPINE SULFATE\DIPHENOXYLATE HYDROCHLORIDE
  37. ESOMEPRAZOLE MAGNESIUM [Concomitant]
     Active Substance: ESOMEPRAZOLE MAGNESIUM
  38. ROSUVASTATIN CALCIUM [Concomitant]
     Active Substance: ROSUVASTATIN CALCIUM

REACTIONS (16)
  - Hypokalaemia [Recovering/Resolving]
  - Biliary obstruction [Recovered/Resolved]
  - Renal failure [Unknown]
  - Oedema mucosal [Unknown]
  - Malignant neoplasm progression [Unknown]
  - Metastases to skin [Unknown]
  - Metastases to pancreas [Unknown]
  - Rash pruritic [Unknown]
  - Diarrhoea [Recovered/Resolved]
  - Acne [Unknown]
  - Thyroiditis [Unknown]
  - Intrapulmonary lymphadenopathy [Unknown]
  - Nodule [Unknown]
  - Faeces pale [Recovered/Resolved]
  - Haemoptysis [Unknown]
  - Arthralgia [Recovering/Resolving]

NARRATIVE: CASE EVENT DATE: 20221027
